FAERS Safety Report 8814723 (Version 1)
Quarter: 2012Q4

REPORT INFORMATION
  Report Type: 
  Country: JP (occurrence: JP)
  Receive Date: 20120928
  Receipt Date: 20120928
  Transmission Date: 20130627
  Serious: Yes (Other)
  Sender: FDA-Public Use
  Company Number: JP-009507513-2012SP028713

PATIENT
  Age: 71 Year
  Sex: Female
  Weight: 63 kg

DRUGS (18)
  1. RIBAVIRIN [Suspect]
     Indication: HEPATITIS C
     Dosage: 600 mg, QD
     Route: 048
     Dates: start: 20120313, end: 20120403
  2. RIBAVIRIN [Suspect]
     Dosage: 200 mg, QD
     Route: 048
     Dates: start: 20120404, end: 20120724
  3. RIBAVIRIN [Suspect]
     Dosage: 400 mg, qd
     Route: 048
     Dates: start: 20120725, end: 20120814
  4. PEGINTRON [Suspect]
     Indication: HEPATITIS C
     Dosage: 0.8 Microgram per kilogram, qw
     Route: 058
     Dates: start: 20120313
  5. PEGINTRON [Suspect]
     Dosage: 0.7 Microgram per kilogram, qw
     Route: 058
     Dates: end: 20120711
  6. PEGINTRON [Suspect]
     Dosage: 0.8 Microgram per kilogram, qw
     Route: 058
     Dates: start: 20120718, end: 20120718
  7. PEGINTRON [Suspect]
     Dosage: 1.0 Microgram per kilogram, qw
     Route: 058
     Dates: start: 20120725, end: 20120808
  8. TELAVIC [Suspect]
     Indication: HEPATITIS C
     Dosage: 1500 mg, qd
     Route: 048
     Dates: start: 20120313, end: 20120515
  9. TELAVIC [Suspect]
     Dosage: 1000 mg, QD
     Route: 048
     Dates: start: 20120516
  10. FEROTYM [Concomitant]
     Indication: HEPATITIS C
     Dosage: UPDATE (29JUN2012): FORMULATION:POR, 100 mg, qd
     Route: 048
  11. CLARITIN REDITABS [Concomitant]
     Indication: PROPHYLAXIS
     Dosage: formulation: POR, 10 mg, QD
     Route: 048
  12. EPADEL [Concomitant]
     Indication: HYPERLIPIDAEMIA
     Dosage: FORMULATION:POR, 1800 mg, qd
     Route: 048
  13. LIVALO [Concomitant]
     Indication: HYPERLIPIDAEMIA
     Dosage: FORMULATION:POR, 2 mg, qd
     Route: 048
  14. AZOLITAN [Concomitant]
     Indication: INSOMNIA
     Dosage: FORMULATION:POR, 0.4 mg, qd
     Route: 048
  15. GASTER [Concomitant]
     Indication: GASTRITIS
     Dosage: FORMULATION:POR, 20 mg, qd
     Route: 048
  16. GASTER [Concomitant]
     Indication: GASTRIC ULCER
     Dosage: formulation: POR 40 mg, qd
     Route: 048
  17. RENIVACE [Concomitant]
     Indication: HYPERTENSION
     Dosage: FORMULATION:POR, 2.5 mg, qd
     Route: 048
  18. GASTER [Concomitant]
     Indication: GASTRIC ULCER
     Dosage: UPADTE (29JUN2012): FORMULATION:POR
     Route: 048

REACTIONS (3)
  - Anaemia [Not Recovered/Not Resolved]
  - Anaemia [Not Recovered/Not Resolved]
  - Anaemia [Not Recovered/Not Resolved]
